FAERS Safety Report 11950794 (Version 2)
Quarter: 2016Q1

REPORT INFORMATION
  Report Type: Spontaneous
  Country: US (occurrence: US)
  Receive Date: 20160126
  Receipt Date: 20160321
  Transmission Date: 20160526
  Serious: No
  Sender: FDA-Public Use
  Company Number: US-PFIZER INC-2016040202

PATIENT
  Age: 29 Year
  Sex: Female
  Weight: 73 kg

DRUGS (1)
  1. DEPO-PROVERA [Suspect]
     Active Substance: MEDROXYPROGESTERONE ACETATE
     Indication: CONTRACEPTION
     Dosage: UNK
     Dates: start: 2014

REACTIONS (4)
  - Weight increased [Unknown]
  - Menorrhagia [Unknown]
  - Amenorrhoea [Recovered/Resolved]
  - Menstrual disorder [Unknown]

NARRATIVE: CASE EVENT DATE: 2014
